FAERS Safety Report 7494626-9 (Version None)
Quarter: 2011Q2

REPORT INFORMATION
  Report Type: 
  Country: None (occurrence: None)
  Receive Date: 20110520
  Receipt Date: 20110519
  Transmission Date: 20111010
  Serious: Yes (Hospitalization)
  Sender: FDA-Public Use
  Company Number: PHHO2009DE12803

PATIENT
  Sex: Male

DRUGS (2)
  1. EVEROLIMUS [Suspect]
     Indication: LIVER TRANSPLANT
     Dosage: 1 MG, BID
     Route: 048
     Dates: start: 20090606, end: 20110406
  2. TACROLIMUS [Suspect]
     Indication: LIVER TRANSPLANT
     Dosage: 0.5 MG, BID
     Route: 048
     Dates: start: 20090606

REACTIONS (7)
  - CONCOMITANT DISEASE PROGRESSION [None]
  - HEPATITIS C [None]
  - DIABETES MELLITUS [None]
  - RENAL FAILURE [None]
  - NEPHROTIC SYNDROME [None]
  - LIVER FUNCTION TEST ABNORMAL [None]
  - ANAEMIA [None]
